FAERS Safety Report 9379769 (Version 1)
Quarter: 2013Q3

REPORT INFORMATION
  Report Type: Spontaneous
  Country: KR (occurrence: KR)
  Receive Date: 20130702
  Receipt Date: 20130702
  Transmission Date: 20140515
  Serious: Yes (Hospitalization)
  Sender: FDA-Public Use
  Company Number: PHHY2013KR065826

PATIENT
  Age: 68 Year
  Sex: Male
  Weight: 65 kg

DRUGS (12)
  1. VALPROIC ACID [Suspect]
     Indication: CONVULSION
     Dosage: 750 MG, BID
     Route: 042
  2. VALPROIC ACID [Interacting]
     Dosage: UNK (VALPROATE WAS INCREASED GRADUALLY TO REACH THERAPEUTIC LEVELS)
     Route: 042
  3. VALPROIC ACID [Interacting]
     Dosage: UNK (ADDITIONAL BOLUS)
     Route: 042
  4. VALPROIC ACID [Interacting]
     Dosage: 1500 MG, BID
     Route: 042
  5. ERTAPENEM [Interacting]
     Dosage: 1000 MG, QD
     Route: 042
  6. CARBAMAZEPINE [Concomitant]
     Dosage: 200 MG, BID
  7. FERROUS SULFATE [Concomitant]
     Dosage: 325 MG, QD
  8. LOVASTATIN [Concomitant]
     Dosage: 20 MG, EVERY EVENING
  9. DOCUSATE [Concomitant]
     Dosage: 100 MG, BID
     Route: 048
  10. ACETAMINOPHEN [Concomitant]
     Dosage: 650 MG, PRN (EVERY 4 HOURS)
  11. INSULIN [Concomitant]
     Dosage: UNK EVERY 6 HOURS, UNK
     Route: 058
  12. VANCOMYCIN [Concomitant]
     Indication: DRUG HYPERSENSITIVITY

REACTIONS (4)
  - Drug interaction [Unknown]
  - Anticonvulsant drug level decreased [Recovering/Resolving]
  - Convulsion [Recovered/Resolved]
  - Tremor [Unknown]
